FAERS Safety Report 6114514-X (Version None)
Quarter: 2009Q1

REPORT INFORMATION
  Report Type: 
  Country: None (occurrence: None)
  Receive Date: 20090313
  Receipt Date: 20090302
  Transmission Date: 20090719
  Serious: Yes (Other)
  Sender: FDA-Public Use
  Company Number: US-JNJFOC-20090100820

PATIENT
  Sex: Male
  Weight: 78.47 kg

DRUGS (5)
  1. REMICADE [Suspect]
     Indication: CROHN'S DISEASE
     Dosage: APPROXIMATELY 28 DOSES
     Route: 042
  2. STEROIDS [Concomitant]
     Dosage: ON ^FOR YEARS^
  3. MERCAPTOPURINE [Concomitant]
     Dosage: ON ^FOR YEARS^
  4. IMURAN [Concomitant]
  5. NEXIUM [Concomitant]

REACTIONS (1)
  - DIFFUSE LARGE B-CELL LYMPHOMA [None]
